FAERS Safety Report 17674123 (Version 1)
Quarter: 2020Q2

REPORT INFORMATION
  Report Type: Spontaneous
  Country: CA (occurrence: CA)
  Receive Date: 20200416
  Receipt Date: 20200416
  Transmission Date: 20200714
  Serious: Yes (Disabling)
  Sender: FDA-Public Use
  Company Number: CA-TEVA-2020-CA-1222007

PATIENT
  Age: 14 Year
  Sex: Male

DRUGS (21)
  1. CODEINE [Concomitant]
     Active Substance: CODEINE
  2. DIMENHYDRINATE. [Concomitant]
     Active Substance: DIMENHYDRINATE
  3. RANITIDINE. [Concomitant]
     Active Substance: RANITIDINE
  4. CEFAZOLIN [Concomitant]
     Active Substance: CEFAZOLIN
     Route: 030
  5. VINCRISTINE SULFATE. [Suspect]
     Active Substance: VINCRISTINE SULFATE
     Indication: MEDULLOBLASTOMA
     Route: 042
  6. FUROSEMIDE. [Concomitant]
     Active Substance: FUROSEMIDE
  7. MEGESTROL [Concomitant]
     Active Substance: MEGESTROL
  8. CEENU [Concomitant]
     Active Substance: LOMUSTINE
  9. CYCLOPHOSPHAMIDE. [Concomitant]
     Active Substance: CYCLOPHOSPHAMIDE
  10. DEXAMETHASONE. [Concomitant]
     Active Substance: DEXAMETHASONE
  11. DIPHENHYDRAMINE. [Concomitant]
     Active Substance: DIPHENHYDRAMINE
  12. CISPLATIN. [Concomitant]
     Active Substance: CISPLATIN
     Route: 042
  13. METOCLOPRAMIDE. [Concomitant]
     Active Substance: METOCLOPRAMIDE
  14. MORPHINE [Concomitant]
     Active Substance: MORPHINE
  15. SULFAMETHOXAZOLE/TRIMETHOPRIM [Concomitant]
     Active Substance: SULFAMETHOXAZOLE\TRIMETHOPRIM
  16. CYPROHEPTADINE. [Concomitant]
     Active Substance: CYPROHEPTADINE
  17. MESNA. [Concomitant]
     Active Substance: MESNA
  18. ACETAMINOPHEN. [Concomitant]
     Active Substance: ACETAMINOPHEN
  19. DOCUSATE [Concomitant]
     Active Substance: DOCUSATE
  20. LORAZEPAM. [Concomitant]
     Active Substance: LORAZEPAM
  21. GRANISETRON [Concomitant]
     Active Substance: GRANISETRON

REACTIONS (1)
  - Peripheral motor neuropathy [Recovered/Resolved]
